FAERS Safety Report 8257086-6 (Version None)
Quarter: 2012Q2

REPORT INFORMATION
  Report Type: 
  Country: None (occurrence: None)
  Receive Date: 20120403
  Receipt Date: 20120403
  Transmission Date: 20120825
  Serious: Yes (Hospitalization)
  Sender: FDA-Public Use
  Company Number: DE-GLAXOSMITHKLINE-D0074976A

PATIENT
  Sex: Female

DRUGS (1)
  1. ALLI [Suspect]
     Dosage: 60MG SINGLE DOSE
     Route: 048

REACTIONS (9)
  - LOSS OF CONSCIOUSNESS [None]
  - FEAR [None]
  - FEELING ABNORMAL [None]
  - PANIC ATTACK [None]
  - SYNCOPE [None]
  - HYPERSENSITIVITY [None]
  - TACHYCARDIA [None]
  - TREMOR [None]
  - HYPERHIDROSIS [None]
